FAERS Safety Report 13690763 (Version 1)
Quarter: 2017Q2

REPORT INFORMATION
  Report Type: Spontaneous
  Country: US (occurrence: US)
  Receive Date: 20170626
  Receipt Date: 20170626
  Transmission Date: 20170830
  Serious: Yes (Other)
  Sender: FDA-Public Use
  Company Number: US-CLOVIS ONCOLOGY-CLO-2017-000327

PATIENT
  Age: 76 Year
  Sex: Female

DRUGS (1)
  1. RUBRACA [Suspect]
     Active Substance: RUCAPARIB CAMSYLATE
     Indication: OVARIAN CANCER
     Dosage: 500 MG, BID
     Route: 048
     Dates: start: 20170114

REACTIONS (5)
  - Photosensitivity reaction [Unknown]
  - Fatigue [Unknown]
  - Asthenia [Unknown]
  - Platelet count decreased [Unknown]
  - Underdose [Unknown]

NARRATIVE: CASE EVENT DATE: 20170114
